FAERS Safety Report 5333288-3 (Version None)
Quarter: 2007Q2

REPORT INFORMATION
  Report Type: 
  Country: None (occurrence: None)
  Receive Date: 20070524
  Receipt Date: 20070523
  Transmission Date: 20071010
  Serious: Yes (Other)
  Sender: FDA-Public Use
  Company Number: US-JNJFOC-20070201722

PATIENT
  Sex: Female

DRUGS (5)
  1. BLINDED; INFLIXIMAB, RECOMBINANT [Suspect]
     Dosage: FINAL INFUSION OF BLINDED STUDY MEDICATION
     Route: 042
  2. BLINDED; INFLIXIMAB, RECOMBINANT [Suspect]
     Indication: LUNG DISORDER
     Route: 042
  3. PLACEBO [Suspect]
     Route: 042
  4. PLACEBO [Suspect]
     Indication: LUNG DISORDER
     Route: 042
  5. PREDNISONE TAB [Concomitant]

REACTIONS (2)
  - BERYLLIOSIS [None]
  - SINUSITIS [None]
